FAERS Safety Report 14057400 (Version 1)
Quarter: 2017Q4

REPORT INFORMATION
  Report Type: Spontaneous
  Country: IN (occurrence: IN)
  Receive Date: 20171006
  Receipt Date: 20171006
  Transmission Date: 20180321
  Serious: Yes (Death, Other)
  Sender: FDA-Public Use
  Company Number: IN-DEPOMED, INC.-IN-2017DEP001961

PATIENT
  Age: 27 Year
  Sex: Female

DRUGS (1)
  1. DICLOFENAC [Suspect]
     Active Substance: DICLOFENAC
     Indication: PRODUCT USED FOR UNKNOWN INDICATION
     Dosage: UNK
     Route: 030

REACTIONS (3)
  - Multiple organ dysfunction syndrome [Unknown]
  - Necrotising fasciitis [Unknown]
  - Septic shock [Fatal]
